FAERS Safety Report 7937649-5 (Version None)
Quarter: 2011Q4

REPORT INFORMATION
  Report Type: 
  Country: None (occurrence: None)
  Receive Date: 20111123
  Receipt Date: 20111113
  Transmission Date: 20120403
  Serious: Yes (Other)
  Sender: FDA-Public Use
  Company Number: PHHY2011MX100061

PATIENT
  Sex: Male

DRUGS (1)
  1. DIOVAN [Suspect]
     Indication: HYPERTENSION
     Dosage: 01 TABLET (160 MG) DAILY
     Dates: start: 20111102, end: 20111102

REACTIONS (4)
  - HYPERHIDROSIS [None]
  - FEELING ABNORMAL [None]
  - BLOOD CHOLESTEROL INCREASED [None]
  - HYPERTENSIVE CRISIS [None]
